FAERS Safety Report 9503033 (Version 1)
Quarter: 2013Q3

REPORT INFORMATION
  Report Type: Spontaneous
  Country: CN (occurrence: CN)
  Receive Date: 20130906
  Receipt Date: 20130906
  Transmission Date: 20140515
  Serious: Yes (Death)
  Sender: FDA-Public Use
  Company Number: CN-ASTELLAS-2013JP009056

PATIENT
  Sex: Male
  Weight: 56 kg

DRUGS (1)
  1. MYCAMINE [Suspect]
     Indication: FUNGAL INFECTION
     Dosage: 150 MG, UNKNOWN/D
     Route: 042
     Dates: start: 20130826

REACTIONS (3)
  - Drug ineffective [Fatal]
  - Platelet count decreased [Fatal]
  - White blood cell count increased [Fatal]
